FAERS Safety Report 4608625-5 (Version None)
Quarter: 2005Q1

REPORT INFORMATION
  Report Type: 
  Country: None (occurrence: None)
  Receive Date: 20050311
  Receipt Date: 20050311
  Transmission Date: 20050727
  Serious: Yes (Hospitalization)
  Sender: FDA-Public Use
  Company Number: None

PATIENT
  Age: 44 Year
  Sex: Male
  Weight: 113.3993 kg

DRUGS (2)
  1. PAXIL CR [Suspect]
     Indication: ANXIETY
     Dosage: 25 MG 3 TABS ORAL
     Route: 048
     Dates: start: 20030101, end: 20050310
  2. PAXIL CR [Suspect]
     Indication: DEPRESSION
     Dosage: 25 MG 3 TABS ORAL
     Route: 048
     Dates: start: 20030101, end: 20050310

REACTIONS (8)
  - AMNESIA [None]
  - ANXIETY [None]
  - COMMUNICATION DISORDER [None]
  - CONVULSION [None]
  - DRUG WITHDRAWAL SYNDROME [None]
  - FEAR [None]
  - IMPAIRED WORK ABILITY [None]
  - MOOD SWINGS [None]
